FAERS Safety Report 4318091-5 (Version None)
Quarter: 2004Q1

REPORT INFORMATION
  Report Type: 
  Country: None (occurrence: None)
  Receive Date: 20040315
  Receipt Date: 20040302
  Transmission Date: 20041129
  Serious: Yes (Hospitalization)
  Sender: FDA-Public Use
  Company Number: NSADSS2002043914

PATIENT
  Age: 77 Year
  Sex: Female
  Weight: 79.3795 kg

DRUGS (3)
  1. REMICADE [Suspect]
     Indication: RHEUMATOID ARTHRITIS
     Dosage: 1 IN 1 AS NECESSARY, INTRAVENOUS DRIP
     Route: 041
  2. METHOTREXATE [Concomitant]
  3. PERCOCET [Concomitant]

REACTIONS (1)
  - HOSPITALISATION [None]
